FAERS Safety Report 17316398 (Version 1)
Quarter: 2020Q1

REPORT INFORMATION
  Report Type: Spontaneous
  Country: NL (occurrence: DE)
  Receive Date: 20200124
  Receipt Date: 20200124
  Transmission Date: 20200409
  Serious: Yes (Other)
  Sender: FDA-Public Use
  Company Number: DE-FRESENIUS KABI-FK202000730

PATIENT
  Age: 50 Year

DRUGS (4)
  1. CARBOPLATIN (MANUFACTURER UNKNOWN) [Suspect]
     Active Substance: CARBOPLATIN
     Indication: ADENOCARCINOMA
     Dosage: 4 CYCLES
     Route: 065
     Dates: start: 201901, end: 201903
  2. PEMETREXED DISODIUM [Suspect]
     Active Substance: PEMETREXED DISODIUM
     Indication: ADENOCARCINOMA
     Dosage: 4 CYCLES
     Route: 065
     Dates: start: 201901, end: 201903
  3. PEMBROLIZUMAB. [Suspect]
     Active Substance: PEMBROLIZUMAB
     Dosage: 4 CYCLES
     Route: 065
     Dates: start: 201901, end: 201903
  4. PEMBROLIZUMAB. [Suspect]
     Active Substance: PEMBROLIZUMAB
     Indication: ADENOCARCINOMA
     Dosage: 6 CYCLES
     Route: 065
     Dates: start: 201903, end: 20190514

REACTIONS (2)
  - Malignant neoplasm progression [Unknown]
  - Pneumonitis [Unknown]

NARRATIVE: CASE EVENT DATE: 201905
